FAERS Safety Report 9134978 (Version 3)
Quarter: 2013Q2

REPORT INFORMATION
  Report Type: Spontaneous
  Country: SE (occurrence: SE)
  Receive Date: 20130304
  Receipt Date: 20130521
  Transmission Date: 20140414
  Serious: Yes (Death, Hospitalization, Other)
  Sender: FDA-Public Use
  Company Number: SE-PFIZER INC-2013070318

PATIENT
  Age: 99 Year
  Sex: Female

DRUGS (4)
  1. XALATAN [Suspect]
     Dosage: 1 DF, 1X/DAY LEFT EYE
  2. ZESTRIL [Concomitant]
     Dosage: 0.5 DF, 1X/DAY
  3. IDEOS [Concomitant]
     Dosage: 1 DF, 1X/DAY
  4. TIMPILO FORTE [Concomitant]
     Dosage: 1 DF, 2X/DAY

REACTIONS (4)
  - Death [Fatal]
  - Corneal perforation [Recovered/Resolved with Sequelae]
  - Intraocular pressure increased [Unknown]
  - Visual acuity tests abnormal [Unknown]
